FAERS Safety Report 11335009 (Version 11)
Quarter: 2018Q2

REPORT INFORMATION
  Report Type: Report from Study
  Country: DE (occurrence: DE)
  Receive Date: 20150804
  Receipt Date: 20180417
  Transmission Date: 20180711
  Serious: Yes (Life-Threatening, Hospitalization, Other)
  Sender: FDA-Public Use
  Company Number: DE-ROCHE-ITM201411IM007553

PATIENT
  Age: 56 Year
  Sex: Male
  Weight: 117 kg

DRUGS (13)
  1. SEROQUEL [Concomitant]
     Active Substance: QUETIAPINE FUMARATE
  2. AMLODIPIN [Concomitant]
     Active Substance: AMLODIPINE BESYLATE
  3. ESBRIET [Suspect]
     Active Substance: PIRFENIDONE
     Dosage: FOR 14 DAYS
     Route: 048
     Dates: start: 20140910, end: 20140923
  4. VENLAFAXIN [Concomitant]
     Active Substance: VENLAFAXINE HYDROCHLORIDE
  5. L-THYROXIN [Concomitant]
     Active Substance: LEVOTHYROXINE SODIUM
  6. LYRICA [Concomitant]
     Active Substance: PREGABALIN
  7. PANTOPRAZOL [Concomitant]
     Active Substance: PANTOPRAZOLE SODIUM
  8. ESBRIET [Suspect]
     Active Substance: PIRFENIDONE
     Indication: IDIOPATHIC PULMONARY FIBROSIS
     Dosage: FOR 14 DAYS
     Route: 048
     Dates: start: 20140827, end: 20140909
  9. INSULIN [Suspect]
     Active Substance: INSULIN NOS
     Indication: PRODUCT USED FOR UNKNOWN INDICATION
     Route: 065
  10. DEKRISTOL [Concomitant]
     Active Substance: CHOLECALCIFEROL
  11. ESBRIET [Suspect]
     Active Substance: PIRFENIDONE
     Route: 048
     Dates: start: 20140924
  12. XELEVIA [Concomitant]
     Active Substance: SITAGLIPTIN PHOSPHATE
  13. METOPROLOL. [Concomitant]
     Active Substance: METOPROLOL

REACTIONS (25)
  - Diabetic ulcer [Unknown]
  - Inflammation [Unknown]
  - Wound [Unknown]
  - Haematochezia [Recovered/Resolved]
  - Eczema [Not Recovered/Not Resolved]
  - Intentional product use issue [Unknown]
  - Cardiac hypertrophy [Not Recovered/Not Resolved]
  - Depression [Not Recovered/Not Resolved]
  - General physical health deterioration [Not Recovered/Not Resolved]
  - Gastric disorder [Not Recovered/Not Resolved]
  - Dry skin [Not Recovered/Not Resolved]
  - Left ventricular failure [Unknown]
  - Thrombosis [Unknown]
  - Phlebitis [Not Recovered/Not Resolved]
  - Skin discolouration [Not Recovered/Not Resolved]
  - Deep vein thrombosis [Recovered/Resolved with Sequelae]
  - Erythema [Not Recovered/Not Resolved]
  - Phlebitis [Unknown]
  - Asthenia [Unknown]
  - Peripheral swelling [Not Recovered/Not Resolved]
  - Depression [Not Recovered/Not Resolved]
  - Suicide attempt [Unknown]
  - Pain in extremity [Not Recovered/Not Resolved]
  - Dyspnoea [Not Recovered/Not Resolved]
  - Chest pain [Not Recovered/Not Resolved]

NARRATIVE: CASE EVENT DATE: 201409
